FAERS Safety Report 5254500-5 (Version None)
Quarter: 2007Q1

REPORT INFORMATION
  Report Type: 
  Country: None (occurrence: None)
  Receive Date: 20061201
  Receipt Date: 20060905
  Transmission Date: 20070707
  Serious: No
  Sender: FDA-Public Use
  Company Number: 2006PV020726

PATIENT
  Age: 65 Year
  Sex: Female
  Weight: 77.1115 kg

DRUGS (7)
  1. BYETTA [Suspect]
     Indication: DIABETES MELLITUS NON-INSULIN-DEPENDENT
     Dosage: SEE IMAGE
     Route: 058
     Dates: start: 20060301, end: 20060902
  2. BYETTA [Suspect]
     Indication: DIABETES MELLITUS NON-INSULIN-DEPENDENT
     Dosage: SEE IMAGE
     Route: 058
     Dates: start: 20060903
  3. ACTOS /USA/ [Concomitant]
  4. GLUCOVANCE [Concomitant]
  5. GLUCOPHAGE [Concomitant]
  6. ALTACE [Concomitant]
  7. ASPIRIN [Concomitant]

REACTIONS (4)
  - BACK PAIN [None]
  - BLOOD URINE [None]
  - INJECTION SITE BRUISING [None]
  - NEPHROLITHIASIS [None]
